FAERS Safety Report 4570245-9 (Version None)
Quarter: 2005Q1

REPORT INFORMATION
  Report Type: 
  Country: None (occurrence: None)
  Receive Date: 20050127
  Receipt Date: 20050127
  Transmission Date: 20050727
  Serious: Yes (Life-Threatening, Hospitalization)
  Sender: FDA-Public Use
  Company Number: None

PATIENT
  Sex: Female
  Weight: 49.7 kg

DRUGS (15)
  1. PRIMAXIN [Suspect]
     Indication: PNEUMONIA
     Dosage: 1GM   IVPB Q8H   INTRAVENOUS
     Route: 042
     Dates: start: 20041228, end: 20041229
  2. ACCUZYME [Concomitant]
  3. DOPAMINE HCL [Concomitant]
  4. LEVOFLOXACIN [Concomitant]
  5. VANCOMYCIN [Concomitant]
  6. AMITRIPTYLINE [Concomitant]
  7. DALTEPARIN [Concomitant]
  8. FENTANYL [Concomitant]
  9. LEVALBUTEROL [Concomitant]
  10. METHYLPREDNISOLONE [Concomitant]
  11. METOCLOPRAMIDE [Concomitant]
  12. MIDAZOLAM HCL [Concomitant]
  13. OXYCODONE HCL [Concomitant]
  14. PANTOPRAZOLE [Concomitant]
  15. ASPIRIN [Concomitant]

REACTIONS (2)
  - COMA [None]
  - GRAND MAL CONVULSION [None]
